FAERS Safety Report 8947650 (Version 1)
Quarter: 2012Q4

REPORT INFORMATION
  Report Type: 
  Country: FR (occurrence: FR)
  Receive Date: 20121204
  Receipt Date: 20121204
  Transmission Date: 20130627
  Serious: Yes (Hospitalization)
  Sender: FDA-Public Use
  Company Number: FR-PURDUE-USA-2012-0096505

PATIENT
  Age: 34 Year
  Sex: Female

DRUGS (3)
  1. TRAMADOL (SIMILAR TO NDA 21-745) [Suspect]
     Indication: PRODUCT USED FOR UNKNOWN INDICATION
  2. ACETAMINOPHEN [Concomitant]
  3. ALFENTANIL [Concomitant]

REACTIONS (3)
  - Metrorrhagia [Unknown]
  - Abdominal pain [Unknown]
  - Exposure during pregnancy [Unknown]
